FAERS Safety Report 13634674 (Version 1)
Quarter: 2017Q2

REPORT INFORMATION
  Report Type: Spontaneous
  Country: US (occurrence: US)
  Receive Date: 20170531
  Receipt Date: 20170531
  Transmission Date: 20170830
  Serious: No
  Sender: FDA-Public Use
  Company Number: US-ASTELLAS-1646903

PATIENT
  Sex: Male

DRUGS (6)
  1. FISH OIL [Concomitant]
     Active Substance: FISH OIL
  2. SIMVASTATIN. [Concomitant]
     Active Substance: SIMVASTATIN
  3. VALSARTAN. [Concomitant]
     Active Substance: VALSARTAN
  4. VITAMIN D3 [Concomitant]
     Active Substance: CHOLECALCIFEROL
  5. TARCEVA [Suspect]
     Active Substance: ERLOTINIB HYDROCHLORIDE
     Indication: LUNG NEOPLASM MALIGNANT
     Route: 048
     Dates: start: 20150822
  6. IMIPRAMINE [Concomitant]
     Active Substance: IMIPRAMINE

REACTIONS (1)
  - Rash [Recovering/Resolving]
